FAERS Safety Report 19724827 (Version 1)
Quarter: 2021Q3

REPORT INFORMATION
  Report Type: Spontaneous
  Country: GB (occurrence: GB)
  Receive Date: 20210820
  Receipt Date: 20210820
  Transmission Date: 20211014
  Serious: Yes (Hospitalization, Disabling, Other)
  Sender: FDA-Public Use
  Company Number: GB-LUPIN PHARMACEUTICALS INC.-2021-15172

PATIENT
  Age: 8 Decade
  Sex: Male

DRUGS (9)
  1. LINEZOLID. [Suspect]
     Active Substance: LINEZOLID
     Indication: MYCOBACTERIUM CHELONAE INFECTION
     Dosage: 600 MILLIGRAM
     Route: 065
  2. PREDNISOLONE. [Concomitant]
     Active Substance: PREDNISOLONE
     Indication: IMMUNOSUPPRESSANT DRUG THERAPY
     Dosage: 7.5 MILLIGRAM, QD (AFTER DISCHARGE, HIS IMMUNOSUPPRESSION WAS MAINTAINED ON LOW?DOSE PREDNISOLONE ON
     Route: 065
  3. TIGECYCLINE. [Suspect]
     Active Substance: TIGECYCLINE
     Indication: EVIDENCE BASED TREATMENT
     Dosage: 50 MILLIGRAM
     Route: 065
  4. CLARITHROMYCIN. [Suspect]
     Active Substance: CLARITHROMYCIN
     Indication: MYCOBACTERIUM CHELONAE INFECTION
     Dosage: 500 MILLIGRAM
     Route: 048
  5. TEDIZOLID [Suspect]
     Active Substance: TEDIZOLID
     Indication: MYCOBACTERIUM CHELONAE INFECTION
     Dosage: 200 MILLIGRAM, QD
     Route: 065
  6. MYCOPHENOLATE [Suspect]
     Active Substance: MYCOPHENOLIC ACID
     Indication: COELIAC DISEASE
     Dosage: UNK
     Route: 065
  7. IMIPENEM AND CILASTATIN [Suspect]
     Active Substance: CILASTATIN SODIUM\IMIPENEM
     Indication: MYCOBACTERIUM CHELONAE INFECTION
     Dosage: UNK
     Route: 065
  8. TOBRAMYCIN. [Suspect]
     Active Substance: TOBRAMYCIN
     Indication: MYCOBACTERIUM CHELONAE INFECTION
     Dosage: 3 MILLIGRAM/KILOGRAM, QD
     Route: 042
  9. AZITHROMYCIN ANHYDROUS. [Suspect]
     Active Substance: AZITHROMYCIN ANHYDROUS
     Indication: COELIAC DISEASE
     Dosage: UNK
     Route: 065

REACTIONS (8)
  - Platelet count decreased [Recovered/Resolved]
  - Peroneal nerve palsy [Unknown]
  - Deafness neurosensory [Not Recovered/Not Resolved]
  - Neuralgia [Unknown]
  - Thrombocytopenia [Recovered/Resolved]
  - Drug ineffective [Unknown]
  - Off label use [Recovered/Resolved]
  - Neuropathy peripheral [Unknown]
